FAERS Safety Report 25282166 (Version 1)
Quarter: 2025Q2

REPORT INFORMATION
  Report Type: Spontaneous
  Country: US (occurrence: US)
  Receive Date: 20250508
  Receipt Date: 20250508
  Transmission Date: 20250717
  Serious: Yes (Hospitalization)
  Sender: ALVA-AMCO PHARMACAL COMPANIES, INC.
  Company Number: US-Alva-Amco Pharmacal Companies, Inc.-2176341

PATIENT

DRUGS (1)
  1. DIUREX ULTRA [Suspect]
     Active Substance: CAFFEINE
     Indication: Fluid retention

REACTIONS (1)
  - Blindness [Unknown]
